FAERS Safety Report 4751552-3 (Version None)
Quarter: 2005Q3

REPORT INFORMATION
  Report Type: 
  Country: None (occurrence: None)
  Receive Date: 20050824
  Receipt Date: 20050725
  Transmission Date: 20060218
  Serious: Yes (Other)
  Sender: FDA-Public Use
  Company Number: US-GLAXOSMITHKLINE-A0567739A

PATIENT
  Age: 24 Year
  Sex: Female

DRUGS (3)
  1. WELLBUTRIN [Suspect]
     Indication: DEPRESSION
     Route: 048
     Dates: start: 20050316
  2. SOMA [Concomitant]
     Indication: BACK PAIN
     Route: 048
  3. AMBIEN [Concomitant]
     Indication: INSOMNIA
     Route: 048

REACTIONS (4)
  - EYE INFLAMMATION [None]
  - EYE PAIN [None]
  - IRITIS [None]
  - VISUAL ACUITY REDUCED [None]
